FAERS Safety Report 5696838-3 (Version None)
Quarter: 2008Q2

REPORT INFORMATION
  Report Type: 
  Country: None (occurrence: None)
  Receive Date: 20080408
  Receipt Date: 20061117
  Transmission Date: 20081010
  Serious: No
  Sender: FDA-Public Use
  Company Number: US-BAYER-US-2006-036240

PATIENT
  Age: 28 Year
  Sex: Female
  Weight: 95 kg

DRUGS (3)
  1. YASMIN [Suspect]
     Indication: ORAL CONTRACEPTION
     Route: 048
     Dates: start: 20061105
  2. PREDNISONE [Concomitant]
     Dosage: UNIT DOSE: 20 MG
  3. HYDROZIDE [Concomitant]
     Dosage: UNIT DOSE: 50 MG

REACTIONS (5)
  - AFFECT LABILITY [None]
  - BREAST SWELLING [None]
  - CRYING [None]
  - HOT FLUSH [None]
  - POLYMENORRHAGIA [None]
